FAERS Safety Report 14611512 (Version 1)
Quarter: 2018Q1

REPORT INFORMATION
  Report Type: Spontaneous
  Country: ES (occurrence: ES)
  Receive Date: 20180308
  Receipt Date: 20180308
  Transmission Date: 20180509
  Serious: Yes (Disabling, Other)
  Sender: FDA-Public Use
  Company Number: ES-ABBVIE-18P-144-2270862-00

PATIENT
  Age: 3 Year
  Sex: Female

DRUGS (5)
  1. APIRETAL [Concomitant]
     Indication: PRODUCT USED FOR UNKNOWN INDICATION
  2. DEPAKINE [Suspect]
     Active Substance: VALPROATE SODIUM
     Indication: FEBRILE CONVULSION
     Route: 065
  3. DEPAKINE [Suspect]
     Active Substance: VALPROATE SODIUM
     Route: 065
  4. DEPAKINE [Suspect]
     Active Substance: VALPROATE SODIUM
     Route: 065
  5. DEPAKINE [Suspect]
     Active Substance: VALPROATE SODIUM
     Route: 065

REACTIONS (9)
  - Staring [Unknown]
  - Tremor [Unknown]
  - Learning disorder [Not Recovered/Not Resolved]
  - Muscle rigidity [Unknown]
  - Speech disorder [Unknown]
  - Pyrexia [Unknown]
  - Autism spectrum disorder [Unknown]
  - Seizure [Unknown]
  - Abnormal behaviour [Unknown]
